FAERS Safety Report 16531016 (Version 1)
Quarter: 2019Q3

REPORT INFORMATION
  Report Type: Spontaneous
  Country: US (occurrence: US)
  Receive Date: 20190703
  Receipt Date: 20190703
  Transmission Date: 20191004
  Serious: Yes (Life-Threatening, Hospitalization, Other)
  Sender: FDA-Public Use
  Company Number: None

PATIENT
  Age: 27 Year
  Sex: Male
  Weight: 54.45 kg

DRUGS (1)
  1. DR. REDDY^S LAB TACROLIMUS 1 MG CAPSULES [Suspect]
     Active Substance: TACROLIMUS
     Indication: LUNG TRANSPLANT REJECTION
     Dosage: ?          QUANTITY:4 CAPSULE(S);?
     Route: 048
     Dates: start: 20190508, end: 20190619

REACTIONS (2)
  - Product substitution issue [None]
  - Drug level below therapeutic [None]

NARRATIVE: CASE EVENT DATE: 20190618
